FAERS Safety Report 5778347-6 (Version None)
Quarter: 2008Q2

REPORT INFORMATION
  Report Type: 
  Country: None (occurrence: None)
  Receive Date: 20080617
  Receipt Date: 20080605
  Transmission Date: 20081010
  Serious: Yes (Other)
  Sender: FDA-Public Use
  Company Number: 2008AL006534

PATIENT
  Age: 85 Year
  Sex: Male
  Weight: 77.1115 kg

DRUGS (8)
  1. DIGOXIN [Suspect]
     Indication: ARRHYTHMIA
     Dosage: 0.125MG DAILY PO
     Route: 048
  2. IMDUR [Concomitant]
  3. LIPITOR [Concomitant]
  4. TRICOR [Concomitant]
  5. ZESTRIL [Concomitant]
  6. FLOMAX [Concomitant]
  7. ADVAIR DISKUS 100/50 [Concomitant]
  8. MUCINEX [Concomitant]

REACTIONS (2)
  - CARDIAC PACEMAKER INSERTION [None]
  - MYOCARDIAL INFARCTION [None]
